FAERS Safety Report 24748730 (Version 1)
Quarter: 2024Q4

REPORT INFORMATION
  Report Type: Spontaneous
  Country: US (occurrence: None)
  Receive Date: 20241216
  Receipt Date: 20241216
  Transmission Date: 20250115
  Serious: Yes (Hospitalization)
  Sender: Public
  Company Number: None

PATIENT
  Age: 17 Year
  Sex: Female
  Weight: 58.97 kg

DRUGS (2)
  1. ZOFRAN [Suspect]
     Active Substance: ONDANSETRON HYDROCHLORIDE
     Dates: start: 20241211, end: 20241211
  2. ZOFRAN [Concomitant]
     Active Substance: ONDANSETRON HYDROCHLORIDE

REACTIONS (7)
  - Chest discomfort [None]
  - Chest pain [None]
  - Chest discomfort [None]
  - Cardiac disorder [None]
  - Arrhythmia [None]
  - Electrocardiogram abnormal [None]
  - Dyspnoea [None]

NARRATIVE: CASE EVENT DATE: 20241212
